FAERS Safety Report 9533099 (Version 1)
Quarter: 2013Q3

REPORT INFORMATION
  Report Type: Spontaneous
  Country: US (occurrence: US)
  Receive Date: 20130918
  Receipt Date: 20130918
  Transmission Date: 20140515
  Serious: No
  Sender: FDA-Public Use
  Company Number: US-PURDUE-USA-2011-0076948

PATIENT
  Sex: Male

DRUGS (1)
  1. BUTRANS [Suspect]
     Indication: BACK PAIN
     Dosage: 10 MCG/HR, DAILY
     Route: 062
     Dates: start: 20110426

REACTIONS (13)
  - Overdose [Unknown]
  - Heart rate irregular [Unknown]
  - Pain in jaw [Unknown]
  - Ear pain [Unknown]
  - Anger [Unknown]
  - Unevaluable event [Unknown]
  - Chest pain [Unknown]
  - Dyspnoea [Unknown]
  - Hyperhidrosis [Unknown]
  - Neck pain [Unknown]
  - Tinnitus [Unknown]
  - Anxiety [Unknown]
  - Pain [Unknown]
